FAERS Safety Report 16391200 (Version 9)
Quarter: 2019Q4

REPORT INFORMATION
  Report Type: Spontaneous
  Country: US (occurrence: US)
  Receive Date: 20190604
  Receipt Date: 20191206
  Transmission Date: 20200122
  Serious: Yes (Congenital Anomaly, Other)
  Sender: FDA-Public Use
  Company Number: PHEH2019US023503

PATIENT
  Sex: Male

DRUGS (2)
  1. ONDANSETRON. [Suspect]
     Active Substance: ONDANSETRON
     Indication: FOETAL EXPOSURE DURING PREGNANCY
     Dosage: MOTHER DOSE: 4 MG, PRN
     Route: 064
  2. ZOFRAN [Suspect]
     Active Substance: ONDANSETRON HYDROCHLORIDE
     Indication: FOETAL EXPOSURE DURING PREGNANCY
     Route: 064

REACTIONS (29)
  - Coarctation of the aorta [Unknown]
  - Wheezing [Unknown]
  - Cardiac murmur [Unknown]
  - Developmental delay [Unknown]
  - Neonatal respiratory distress [Unknown]
  - Left ventricular hypertrophy [Unknown]
  - Aggression [Unknown]
  - Pyrexia [Unknown]
  - Patent ductus arteriosus [Unknown]
  - Mitral valve incompetence [Unknown]
  - Bronchiolitis [Unknown]
  - Premature baby [Unknown]
  - Heart disease congenital [Unknown]
  - Anaphylactic reaction [Unknown]
  - Urticaria [Unknown]
  - Swelling [Unknown]
  - Rash [Unknown]
  - Left-to-right cardiac shunt [Unknown]
  - Jaundice neonatal [Unknown]
  - Upper respiratory tract infection [Unknown]
  - Hypertension neonatal [Unknown]
  - Emotional distress [Unknown]
  - Anhedonia [Unknown]
  - Injury [Not Recovered/Not Resolved]
  - Congenital mitral valve stenosis [Unknown]
  - Foetal exposure during pregnancy [Unknown]
  - Deformity [Unknown]
  - Congenital anomaly [Unknown]
  - Pain [Unknown]
